FAERS Safety Report 17137356 (Version 2)
Quarter: 2020Q4

REPORT INFORMATION
  Report Type: Spontaneous
  Country: US (occurrence: US)
  Receive Date: 20191210
  Receipt Date: 20201209
  Transmission Date: 20210113
  Serious: No
  Sender: FDA-Public Use
  Company Number: US-VIFOR (INTERNATIONAL) INC.-VIT-2019-13266

PATIENT
  Age: 58 Year
  Sex: Male

DRUGS (15)
  1. FAMOTIDINE. [Concomitant]
     Active Substance: FAMOTIDINE
     Dates: start: 20190713
  2. DOXAZOSIN [Concomitant]
     Active Substance: DOXAZOSIN MESYLATE
     Dates: start: 20190524
  3. TAMSULOSIN [Concomitant]
     Active Substance: TAMSULOSIN
     Dates: start: 20190614
  4. ATORVASTATIN [Concomitant]
     Active Substance: ATORVASTATIN
     Dates: start: 20190602
  5. VELTASSA [Suspect]
     Active Substance: PATIROMER
     Indication: HYPERKALAEMIA
     Route: 048
     Dates: start: 20191018, end: 2019
  6. AMLODIPINE [Concomitant]
     Active Substance: AMLODIPINE BESYLATE
     Dates: start: 20190708
  7. VELTASSA [Suspect]
     Active Substance: PATIROMER
  8. CLONIDINE. [Concomitant]
     Active Substance: CLONIDINE
     Dates: start: 20190427
  9. INSULIN [Concomitant]
     Active Substance: INSULIN NOS
     Dosage: 0.3/31 G
     Dates: start: 20190523
  10. ONE TOUCH TES ULTRA BL [Concomitant]
     Dates: start: 20190524
  11. CARVEDILOL. [Concomitant]
     Active Substance: CARVEDILOL
     Dates: start: 20190713
  12. ATORVASTATIN [Concomitant]
     Active Substance: ATORVASTATIN
     Dates: start: 20190929
  13. DOXAZOSIN [Concomitant]
     Active Substance: DOXAZOSIN MESYLATE
     Dates: start: 20190525
  14. TAMSULOSIN [Concomitant]
     Active Substance: TAMSULOSIN
     Dates: start: 20190930
  15. TAMSULOSIN [Concomitant]
     Active Substance: TAMSULOSIN
     Dates: start: 20190929

REACTIONS (2)
  - Diarrhoea [Unknown]
  - Adverse drug reaction [Recovered/Resolved]

NARRATIVE: CASE EVENT DATE: 2019
